FAERS Safety Report 4290105-0 (Version None)
Quarter: 2004Q1

REPORT INFORMATION
  Report Type: 
  Country: None (occurrence: None)
  Receive Date: 20040209
  Receipt Date: 20040127
  Transmission Date: 20041129
  Serious: Yes (Death, Life-Threatening, Hospitalization)
  Sender: FDA-Public Use
  Company Number: 2004-112261-NL

PATIENT
  Age: 83 Year
  Sex: Male

DRUGS (11)
  1. DANAPAROID SODIUM [Suspect]
     Indication: DISSEMINATED INTRAVASCULAR COAGULATION
     Dosage: 1250 ANTI  XA  QD; INTRAVENOUS NOS
     Route: 042
     Dates: start: 20030326, end: 20030404
  2. CLINDAMYCIN HYDROCHLORIDE [Concomitant]
  3. AMINOPHYLLINE [Concomitant]
  4. FAMOTIDINE [Concomitant]
  5. HYDROCORTISONE SODIUM SUCCINATE [Concomitant]
  6. METROPENEM [Concomitant]
  7. FUROSEMIDE [Concomitant]
  8. BUMETANIDE [Concomitant]
  9. DOBUTAMINE HCL [Concomitant]
  10. KAKODIN D [Concomitant]
  11. MANITOL [Concomitant]

REACTIONS (6)
  - ANAEMIA [None]
  - BLOOD CHOLESTEROL DECREASED [None]
  - BLOOD POTASSIUM DECREASED [None]
  - BLOOD UREA INCREASED [None]
  - PNEUMONIA [None]
  - WHITE BLOOD CELL COUNT INCREASED [None]
